FAERS Safety Report 7573631-8 (Version None)
Quarter: 2011Q2

REPORT INFORMATION
  Report Type: 
  Country: None (occurrence: None)
  Receive Date: 20110627
  Receipt Date: 20110616
  Transmission Date: 20111010
  Serious: Yes (Hospitalization)
  Sender: FDA-Public Use
  Company Number: ES-ROCHE-748424

PATIENT
  Sex: Female

DRUGS (10)
  1. TOCILIZUMAB [Suspect]
     Route: 042
     Dates: start: 20060411, end: 20100901
  2. METHOTREXATE [Concomitant]
  3. FOLIC ACID [Concomitant]
  4. ERYTROMYCIN [Concomitant]
  5. DICLOFENAC SODIUM [Concomitant]
  6. FELODIPINE [Concomitant]
  7. METILPREDNISOLONE [Concomitant]
  8. CALCIUM CARBONATE [Concomitant]
  9. IRBESARTAN [Concomitant]
  10. TOCILIZUMAB [Suspect]
     Indication: RHEUMATOID ARTHRITIS
     Dosage: LAST DOSE PRIOR TO SAE WAS ON 16 NOV 2010
     Route: 042

REACTIONS (1)
  - ATRIAL FIBRILLATION [None]
